FAERS Safety Report 16597338 (Version 1)
Quarter: 2019Q3

REPORT INFORMATION
  Report Type: Spontaneous
  Country: US (occurrence: US)
  Receive Date: 20190718
  Receipt Date: 20190718
  Transmission Date: 20191004
  Serious: Yes (Hospitalization)
  Sender: FDA-Public Use
  Company Number: None

PATIENT
  Age: 72 Year
  Sex: Female
  Weight: 60 kg

DRUGS (1)
  1. CLOZAPINE. [Suspect]
     Active Substance: CLOZAPINE
     Indication: ANXIETY
     Route: 048
     Dates: end: 20190611

REACTIONS (4)
  - Chills [None]
  - Pleural effusion [None]
  - Pericardial effusion [None]
  - Pericarditis [None]

NARRATIVE: CASE EVENT DATE: 20190611
